FAERS Safety Report 20583076 (Version 1)
Quarter: 2022Q1

REPORT INFORMATION
  Report Type: Spontaneous
  Country: US (occurrence: US)
  Receive Date: 20220311
  Receipt Date: 20220311
  Transmission Date: 20220423
  Serious: Yes (Other)
  Sender: FDA-Public Use
  Company Number: US-ELI_LILLY_AND_COMPANY-US202203004964

PATIENT
  Sex: Female

DRUGS (1)
  1. RETEVMO [Suspect]
     Active Substance: SELPERCATINIB
     Indication: Medullary thyroid cancer
     Dosage: UNK, UNKNOWN
     Route: 065

REACTIONS (2)
  - Cyst [Unknown]
  - Tumour marker abnormal [Unknown]
